FAERS Safety Report 7792700 (Version 2)
Quarter: 2016Q4

REPORT INFORMATION
  Report Type: Report from Study
  Country: DE (occurrence: DE)
  Receive Date: 20110131
  Receipt Date: 20161104
  Transmission Date: 20170207
  Serious: Yes (Other)
  Sender: FDA-Public Use
  Company Number: DE-ROCHE-755016

PATIENT

DRUGS (4)
  1. INTERFERON ALFA-2A [Suspect]
     Active Substance: INTERFERON ALFA-2A
     Indication: COLORECTAL CANCER
     Dosage: DOSE: 6X10E6 IU
     Route: 058
  2. 5-FLUOROURACIL [Suspect]
     Active Substance: FLUOROURACIL
     Indication: COLORECTAL CANCER
     Dosage: LOADING DOSE, FOR 60-120 MIN ON DAYS 1-5.  FORM: INFUSION
     Route: 065
  3. FOLINIC ACID [Concomitant]
     Active Substance: LEUCOVORIN
     Dosage: 10 MIN BEFORE 5-FU AS SHORT INFUSION
     Route: 065
  4. LEVAMISOL [Concomitant]
     Indication: COLORECTAL CANCER
     Dosage: DAY 1-3
     Route: 048

REACTIONS (7)
  - Vomiting [Unknown]
  - Skin toxicity [Unknown]
  - Diarrhoea [Unknown]
  - Neurotoxicity [Unknown]
  - Haematotoxicity [Unknown]
  - Nausea [Unknown]
  - Pyrexia [Unknown]
